FAERS Safety Report 6331393-6 (Version None)
Quarter: 2009Q3

REPORT INFORMATION
  Report Type: 
  Country: None (occurrence: None)
  Receive Date: 20090827
  Receipt Date: 20090821
  Transmission Date: 20100115
  Serious: Yes (Hospitalization, Other)
  Sender: FDA-Public Use
  Company Number: US-ABBOTT-08P-163-0474906-00

PATIENT
  Sex: Female
  Weight: 46.308 kg

DRUGS (13)
  1. HUMIRA [Suspect]
     Indication: RHEUMATOID ARTHRITIS
     Route: 058
     Dates: start: 20040101, end: 20060101
  2. HUMIRA [Suspect]
     Indication: RHEUMATOID ARTHRITIS
     Route: 058
     Dates: start: 20060101
  3. HUMIRA [Suspect]
     Route: 058
     Dates: start: 20080701
  4. EVISTA [Concomitant]
     Indication: BONE DISORDER
     Route: 048
     Dates: start: 20080301
  5. XANAX [Concomitant]
     Indication: INSOMNIA
     Route: 048
  6. XANAX [Concomitant]
     Route: 048
  7. RESTORIL [Concomitant]
     Indication: INSOMNIA
     Route: 048
  8. DARVOCET [Concomitant]
     Indication: RHEUMATOID ARTHRITIS
     Route: 048
  9. DARVOCET [Concomitant]
  10. DIAZIDE [Concomitant]
     Indication: HYPERTENSION
     Dates: start: 20010101
  11. MULTI-VITAMIN [Concomitant]
     Indication: VITAMIN SUPPLEMENTATION
     Dosage: WHEN SHE REMEMBERS
     Route: 048
     Dates: start: 20060101
  12. BROMIDE NASAL SPRAY [Concomitant]
     Indication: RHINORRHOEA
     Route: 045
     Dates: start: 20070101
  13. INDERAL [Concomitant]
     Indication: CORONARY ARTERY DISEASE
     Route: 048
     Dates: start: 20010101

REACTIONS (7)
  - ARTHRALGIA [None]
  - BLOOD CHOLESTEROL INCREASED [None]
  - GAIT DISTURBANCE [None]
  - GASTROOESOPHAGEAL REFLUX DISEASE [None]
  - INCORRECT DOSE ADMINISTERED [None]
  - INJECTION SITE EXTRAVASATION [None]
  - RHEUMATOID ARTHRITIS [None]
